FAERS Safety Report 13058673 (Version 1)
Quarter: 2016Q4

REPORT INFORMATION
  Report Type: Spontaneous
  Country: US (occurrence: US)
  Receive Date: 20161223
  Receipt Date: 20161223
  Transmission Date: 20170207
  Serious: No
  Sender: FDA-Public Use
  Company Number: US-PFIZER INC-2016580593

PATIENT
  Age: 17 Year
  Sex: Male
  Weight: 50.79 kg

DRUGS (1)
  1. GENOTROPIN [Suspect]
     Active Substance: SOMATROPIN
     Indication: GROWTH HORMONE DEFICIENCY
     Dosage: 2.2 MG, DAILY
     Route: 058
     Dates: start: 201612

REACTIONS (4)
  - Nipple pain [Unknown]
  - Pruritus [Unknown]
  - Heart rate increased [Unknown]
  - Breast mass [Unknown]
